FAERS Safety Report 4278127-7 (Version None)
Quarter: 2004Q1

REPORT INFORMATION
  Report Type: 
  Country: None (occurrence: None)
  Receive Date: 20040123
  Receipt Date: 20010705
  Transmission Date: 20041129
  Serious: Yes (Hospitalization)
  Sender: FDA-Public Use
  Company Number: WAES 01070525

PATIENT
  Age: 69 Year
  Sex: Female
  Weight: 86 kg

DRUGS (20)
  1. VICODIN [Concomitant]
  2. ELAVIL [Concomitant]
  3. ATENOLOL [Concomitant]
  4. CELEBREX [Concomitant]
     Dates: start: 20010307
  5. PLAVIX [Concomitant]
  6. FLEXERIL [Concomitant]
     Dates: start: 20010209, end: 20010301
  7. FLEXERIL [Concomitant]
     Dates: start: 20010307, end: 20010319
  8. FLEXERIL [Concomitant]
     Dates: start: 20010412
  9. PREMARIN [Concomitant]
  10. PEPCID [Concomitant]
     Route: 048
  11. DYAZIDE [Concomitant]
     Indication: HYPERTENSION
     Dates: end: 20010101
  12. ACCUPRIL [Concomitant]
     Dates: start: 20010715
  13. VIOXX [Suspect]
     Indication: OSTEOARTHRITIS
     Route: 048
     Dates: start: 20000425
  14. VIOXX [Suspect]
     Route: 048
     Dates: start: 20010209, end: 20010307
  15. VIOXX [Suspect]
     Indication: PAIN
     Route: 048
     Dates: start: 20000425
  16. VIOXX [Suspect]
     Route: 048
     Dates: start: 20010209, end: 20010307
  17. ZOLOFT [Concomitant]
     Dates: end: 20010301
  18. ZOLOFT [Concomitant]
     Dates: start: 20010412
  19. ULTRAM [Concomitant]
  20. CALAN [Concomitant]
     Dates: start: 20010315

REACTIONS (18)
  - ABNORMAL DREAMS [None]
  - BLOOD PRESSURE INCREASED [None]
  - DEPRESSION [None]
  - DISTURBANCE IN ATTENTION [None]
  - DIZZINESS [None]
  - DRUG INEFFECTIVE [None]
  - FALL [None]
  - FEAR [None]
  - FIBROMYALGIA [None]
  - HEADACHE [None]
  - MUSCLE STRAIN [None]
  - NECK PAIN [None]
  - PAIN [None]
  - RENAL FAILURE [None]
  - RESPIRATORY DISORDER [None]
  - SLEEP DISORDER [None]
  - STRESS SYMPTOMS [None]
  - THERAPEUTIC RESPONSE DECREASED [None]
